FAERS Safety Report 4449343-6 (Version None)
Quarter: 2004Q3

REPORT INFORMATION
  Report Type: 
  Country: None (occurrence: None)
  Receive Date: 20040913
  Receipt Date: 20040831
  Transmission Date: 20050211
  Serious: Yes (Hospitalization)
  Sender: FDA-Public Use
  Company Number: 2004231120US

PATIENT

DRUGS (1)
  1. BEXTRA [Suspect]
     Dosage: ORAL
     Route: 048

REACTIONS (1)
  - UNEVALUABLE EVENT [None]
